FAERS Safety Report 9482373 (Version 3)
Quarter: 2013Q3

REPORT INFORMATION
  Report Type: Spontaneous
  Country: GB (occurrence: GB)
  Receive Date: 20130828
  Receipt Date: 20130927
  Transmission Date: 20140515
  Serious: Yes (Hospitalization, Other)
  Sender: FDA-Public Use
  Company Number: PHHY2013GB090968

PATIENT
  Sex: 0

DRUGS (5)
  1. LANSOPRAZOLE [Suspect]
     Dosage: 15 MG, QD
     Route: 048
  2. QUETIAPINE [Suspect]
     Indication: CONFUSIONAL STATE
     Dosage: 25 MG, UNK
     Route: 048
  3. ATENOLOL [Concomitant]
     Dosage: 50 MG, QD
  4. WARFARIN [Concomitant]
  5. NITROFURANTOIN [Concomitant]

REACTIONS (3)
  - Inappropriate antidiuretic hormone secretion [Recovered/Resolved]
  - Confusional state [Recovering/Resolving]
  - Hyponatraemia [Unknown]
